FAERS Safety Report 16420257 (Version 6)
Quarter: 2020Q4

REPORT INFORMATION
  Report Type: Spontaneous
  Country: US (occurrence: US)
  Receive Date: 20190612
  Receipt Date: 20201217
  Transmission Date: 20210113
  Serious: No
  Sender: FDA-Public Use
  Company Number: US-PFIZER INC-2019247628

PATIENT
  Age: 69 Year
  Sex: Female

DRUGS (1)
  1. PREMARIN [Suspect]
     Active Substance: ESTROGENS, CONJUGATED
     Dosage: UNK

REACTIONS (7)
  - Feeling abnormal [Unknown]
  - Hyperhidrosis [Unknown]
  - Chills [Unknown]
  - Feeling cold [Unknown]
  - Asthenia [Unknown]
  - Presyncope [Unknown]
  - Illness [Unknown]
